FAERS Safety Report 14431946 (Version 1)
Quarter: 2018Q1

REPORT INFORMATION
  Report Type: Report from Study
  Country: KR (occurrence: KR)
  Receive Date: 20180124
  Receipt Date: 20180124
  Transmission Date: 20180509
  Serious: Yes (Hospitalization)
  Sender: FDA-Public Use
  Company Number: KR-JNJFOC-20170822177

PATIENT

DRUGS (42)
  1. PYRAZINAMIDE. [Suspect]
     Active Substance: PYRAZINAMIDE
     Indication: TUBERCULOSIS
     Dosage: 7 DAYS??((REGIMEN 2)
     Route: 048
     Dates: start: 20170714, end: 20170719
  2. KANAMYCIN [Suspect]
     Active Substance: KANAMYCIN\KANAMYCIN A SULFATE
     Indication: TUBERCULOSIS
     Dosage: (REGIMEN 2)
     Route: 030
     Dates: start: 20170714, end: 20170817
  3. COLCHICINE. [Concomitant]
     Active Substance: COLCHICINE
     Indication: GOUT
     Route: 048
     Dates: start: 20170720
  4. METOCLOPRAMIDE HCL [Concomitant]
     Active Substance: METOCLOPRAMIDE HYDROCHLORIDE
     Indication: GASTROINTESTINAL DISORDER
     Route: 065
     Dates: start: 20170506, end: 20170513
  5. METOCLOPRAMIDE HCL [Concomitant]
     Active Substance: METOCLOPRAMIDE HYDROCHLORIDE
     Indication: NAUSEA
     Route: 065
     Dates: start: 20170816, end: 20170816
  6. TRAMADOL. [Concomitant]
     Active Substance: TRAMADOL
     Indication: PAIN
     Route: 065
     Dates: start: 20170309, end: 20170329
  7. PETHIDINE [Concomitant]
     Active Substance: MEPERIDINE
     Indication: ABDOMINAL SYMPTOM
     Route: 065
     Dates: start: 20170507, end: 20170508
  8. PETHIDINE [Concomitant]
     Active Substance: MEPERIDINE
     Indication: ABDOMINAL SYMPTOM
     Route: 065
     Dates: start: 20170816, end: 20170816
  9. PYRAZINAMIDE. [Suspect]
     Active Substance: PYRAZINAMIDE
     Indication: TUBERCULOSIS
     Dosage: (REGIMEN 1)
     Route: 048
     Dates: start: 20170309, end: 20170509
  10. HARNAL [Concomitant]
     Active Substance: TAMSULOSIN HYDROCHLORIDE
     Indication: POLLAKIURIA
     Route: 048
     Dates: start: 20170331, end: 20170817
  11. METOCLOPRAMIDE HCL [Concomitant]
     Active Substance: METOCLOPRAMIDE HYDROCHLORIDE
     Indication: NAUSEA
     Route: 065
     Dates: start: 20170506, end: 20170513
  12. TRAMADOL. [Concomitant]
     Active Substance: TRAMADOL
     Indication: ABDOMINAL SYMPTOM
     Route: 065
     Dates: start: 20170701, end: 20170716
  13. SODIUM [Concomitant]
     Active Substance: SODIUM
     Indication: FLUID REPLACEMENT
     Route: 065
     Dates: start: 20170821
  14. FEBUXOSTAT. [Concomitant]
     Active Substance: FEBUXOSTAT
     Indication: GOUT
     Route: 048
     Dates: start: 20170726
  15. GASMOTIN [Concomitant]
     Active Substance: MOSAPRIDE CITRATE
     Indication: GASTROINTESTINAL DISORDER
     Route: 048
     Dates: start: 20170309, end: 20170817
  16. ASPIRIN. [Concomitant]
     Active Substance: ASPIRIN
     Indication: HYPERTENSION
     Route: 048
     Dates: start: 20170321, end: 20170829
  17. TRAMADOL. [Concomitant]
     Active Substance: TRAMADOL
     Indication: PAIN
     Route: 065
     Dates: start: 20170701, end: 20170716
  18. SODIUM [Concomitant]
     Active Substance: SODIUM
     Indication: FLUID REPLACEMENT
     Route: 065
     Dates: start: 20170702, end: 20170716
  19. BEDAQUILINE [Suspect]
     Active Substance: BEDAQUILINE
     Indication: TUBERCULOSIS
     Dosage: (REGIMEN 2)
     Route: 048
     Dates: start: 20170729, end: 20170817
  20. PYRAZINAMIDE. [Suspect]
     Active Substance: PYRAZINAMIDE
     Indication: TUBERCULOSIS
     Dosage: (REGIMEN 1)
     Route: 048
     Dates: start: 20170517, end: 20170714
  21. MUCOSTA [Concomitant]
     Active Substance: REBAMIPIDE
     Indication: GASTROINTESTINAL DISORDER
     Route: 048
     Dates: start: 20170321, end: 20170821
  22. METOCLOPRAMIDE HCL [Concomitant]
     Active Substance: METOCLOPRAMIDE HYDROCHLORIDE
     Indication: GASTROINTESTINAL DISORDER
     Route: 065
     Dates: start: 20170310, end: 20170330
  23. TRAMADOL. [Concomitant]
     Active Substance: TRAMADOL
     Indication: ABDOMINAL SYMPTOM
     Route: 065
     Dates: start: 20170309, end: 20170329
  24. FEXOFEN [Concomitant]
     Indication: PRURITUS
     Route: 048
     Dates: start: 20170524, end: 20170817
  25. DEXILANT [Concomitant]
     Active Substance: DEXLANSOPRAZOLE
     Indication: GASTROINTESTINAL DISORDER
     Route: 048
     Dates: start: 20170406, end: 20170821
  26. BEDAQUILINE [Suspect]
     Active Substance: BEDAQUILINE
     Indication: TUBERCULOSIS
     Dosage: 2 WEEKS (REGIMEN 2)
     Route: 048
     Dates: start: 20170714, end: 20170727
  27. KANAMYCIN [Suspect]
     Active Substance: KANAMYCIN\KANAMYCIN A SULFATE
     Indication: TUBERCULOSIS
     Dosage: (REGIMEN 1)
     Route: 030
     Dates: start: 20170515, end: 20170630
  28. CYCLOSERINE. [Suspect]
     Active Substance: CYCLOSERINE
     Indication: TUBERCULOSIS
     Dosage: (REGIMEN 1)
     Route: 048
     Dates: start: 20170601, end: 20170714
  29. TWYNSTA [Concomitant]
     Active Substance: AMLODIPINE BESYLATE\TELMISARTAN
     Indication: HYPERTENSION
     Route: 048
     Dates: start: 20170406, end: 20170821
  30. METOCLOPRAMIDE HCL [Concomitant]
     Active Substance: METOCLOPRAMIDE HYDROCHLORIDE
     Indication: GASTROINTESTINAL DISORDER
     Route: 065
     Dates: start: 20170816, end: 20170816
  31. KANAMYCIN [Suspect]
     Active Substance: KANAMYCIN\KANAMYCIN A SULFATE
     Indication: TUBERCULOSIS
     Dosage: (REGIMEN 1)
     Route: 030
     Dates: start: 20170309, end: 20170509
  32. CYCLOSERINE. [Suspect]
     Active Substance: CYCLOSERINE
     Indication: TUBERCULOSIS
     Dosage: (REGIMEN 1)
     Route: 048
     Dates: start: 20170310, end: 20170327
  33. METOCLOPRAMIDE HCL [Concomitant]
     Active Substance: METOCLOPRAMIDE HYDROCHLORIDE
     Indication: NAUSEA
     Route: 065
     Dates: start: 20170310, end: 20170330
  34. BEDAQUILINE [Suspect]
     Active Substance: BEDAQUILINE
     Indication: TUBERCULOSIS
     Route: 048
     Dates: start: 20170920
  35. KANAMYCIN [Suspect]
     Active Substance: KANAMYCIN\KANAMYCIN A SULFATE
     Indication: TUBERCULOSIS
     Route: 030
     Dates: start: 20170920
  36. CYCLOSERINE. [Suspect]
     Active Substance: CYCLOSERINE
     Indication: TUBERCULOSIS
     Dosage: (REGIMEN 2)
     Route: 048
     Dates: start: 20170714, end: 20170817
  37. LIVALO [Concomitant]
     Active Substance: PITAVASTATIN CALCIUM
     Indication: HYPERTENSION
     Route: 048
     Dates: start: 20170406, end: 20170821
  38. TRAMADOL. [Concomitant]
     Active Substance: TRAMADOL
     Indication: PAIN
     Route: 065
     Dates: start: 20170816, end: 20170816
  39. PETHIDINE [Concomitant]
     Active Substance: MEPERIDINE
     Indication: ABDOMINAL SYMPTOM
     Route: 065
     Dates: start: 20170313, end: 20170314
  40. LINEZOLID. [Suspect]
     Active Substance: LINEZOLID
     Indication: TUBERCULOSIS
     Dosage: (REGIMEN 2)
     Route: 048
     Dates: start: 20170714, end: 20170817
  41. PYRIDOXINE [Concomitant]
     Active Substance: PYRIDOXINE
     Indication: POLYNEUROPATHY
     Route: 048
     Dates: start: 20170309, end: 20170817
  42. TRAMADOL. [Concomitant]
     Active Substance: TRAMADOL
     Indication: ABDOMINAL SYMPTOM
     Route: 065
     Dates: start: 20170816, end: 20170816

REACTIONS (1)
  - Enterocolitis [Recovered/Resolved]

NARRATIVE: CASE EVENT DATE: 20170805
